FAERS Safety Report 6905610-5 (Version None)
Quarter: 2010Q3

REPORT INFORMATION
  Report Type: 
  Country: None (occurrence: None)
  Receive Date: 20100804
  Receipt Date: 20100722
  Transmission Date: 20110219
  Serious: Yes (Other)
  Sender: FDA-Public Use
  Company Number: US-PAR PHARMACEUTICAL, INC-2010SCPR001962

PATIENT

DRUGS (3)
  1. IBUPROFEN [Suspect]
     Indication: INTENTIONAL SELF-INJURY
     Dosage: UNK
     Route: 048
     Dates: start: 20100722
  2. ALEVE (CAPLET) [Suspect]
     Indication: INTENTIONAL SELF-INJURY
     Dosage: 2200 MG, UNKNOWN
     Route: 048
     Dates: start: 20100722
  3. ASPIRIN [Suspect]
     Indication: INTENTIONAL SELF-INJURY
     Dosage: UNK
     Route: 048
     Dates: start: 20100722

REACTIONS (3)
  - ABDOMINAL PAIN UPPER [None]
  - HEART RATE INCREASED [None]
  - MULTIPLE DRUG OVERDOSE INTENTIONAL [None]
